FAERS Safety Report 4749275-X (Version None)
Quarter: 2005Q3

REPORT INFORMATION
  Report Type: 
  Country: None (occurrence: None)
  Receive Date: 20050812
  Receipt Date: 20050505
  Transmission Date: 20060218
  Serious: Yes (Hospitalization)
  Sender: FDA-Public Use
  Company Number: 404195

PATIENT
  Age: 38 Year
  Sex: Male
  Weight: 62.6 kg

DRUGS (6)
  1. PEGASYS [Suspect]
     Indication: HEPATITIS C VIRUS
     Dosage: 180 MCG 1 PER WEEK SUBCUTANEOUS
     Route: 058
     Dates: start: 20050315
  2. COPEGUS [Suspect]
     Indication: HEPATITIS C VIRUS
     Dosage: 2 PER DAY ORAL
     Route: 048
     Dates: start: 20050315
  3. LITHIUM CARBONATE [Concomitant]
  4. ALBUTEROL [Concomitant]
  5. HYDROCODONE BITARTRATE [Concomitant]
  6. ATIVAN [Concomitant]

REACTIONS (7)
  - ASTHENIA [None]
  - GROIN INFECTION [None]
  - NAUSEA [None]
  - NEUTROPENIA [None]
  - POSTOPERATIVE INFECTION [None]
  - PYREXIA [None]
  - WEIGHT DECREASED [None]
